FAERS Safety Report 19008294 (Version 2)
Quarter: 2021Q3

REPORT INFORMATION
  Report Type: Other
  Country: CA (occurrence: CA)
  Receive Date: 20210316
  Receipt Date: 20210726
  Transmission Date: 20211014
  Serious: Yes (Hospitalization)
  Sender: FDA-Public Use
  Company Number: CA-APOTEX-2021AP005517

PATIENT
  Age: 60 Year
  Sex: Male

DRUGS (9)
  1. NUCALA [Suspect]
     Active Substance: MEPOLIZUMAB
     Indication: PRODUCT USED FOR UNKNOWN INDICATION
     Dosage: 100 MILLIGRAM
     Route: 042
  2. SINGULAIR [Suspect]
     Active Substance: MONTELUKAST SODIUM
     Indication: PRODUCT USED FOR UNKNOWN INDICATION
     Dosage: 10 MILLIGRAM, QD
     Route: 048
  3. TIOTROPIUM [Suspect]
     Active Substance: TIOTROPIUM
     Indication: PRODUCT USED FOR UNKNOWN INDICATION
     Dosage: 2 DOSAGE FORM, QD
  4. BUDESONIDE;FORMOTEROL FUMARATE [Suspect]
     Active Substance: BUDESONIDE\FORMOTEROL FUMARATE
     Indication: PRODUCT USED FOR UNKNOWN INDICATION
     Dosage: 2 DOSAGE FORM, BID
  5. PREDNISONE. [Concomitant]
     Active Substance: PREDNISONE
     Dosage: 50 MILLIGRAM
     Route: 065
  6. PREDNISONE. [Concomitant]
     Active Substance: PREDNISONE
     Indication: PRODUCT USED FOR UNKNOWN INDICATION
     Dosage: 25 MILLIGRAM
     Route: 065
  7. NUCALA [Suspect]
     Active Substance: MEPOLIZUMAB
     Indication: ASTHMA
  8. SALBUTAMOL [Suspect]
     Active Substance: ALBUTEROL
     Indication: PRODUCT USED FOR UNKNOWN INDICATION
     Dosage: 2 DOSAGE FORM
  9. SYMBICORT [Suspect]
     Active Substance: BUDESONIDE\FORMOTEROL FUMARATE DIHYDRATE
     Indication: PRODUCT USED FOR UNKNOWN INDICATION
     Dosage: 2 DOSAGE FORM, BID

REACTIONS (18)
  - Loss of personal independence in daily activities [Unknown]
  - Dyspnoea [Unknown]
  - Asthenia [Unknown]
  - Feeling abnormal [Unknown]
  - Multiple allergies [Unknown]
  - Productive cough [Unknown]
  - Pyrexia [Unknown]
  - Sleep disorder due to a general medical condition [Unknown]
  - Malaise [Unknown]
  - Asthma [Unknown]
  - Wheezing [Unknown]
  - Mobility decreased [Unknown]
  - Cough [Unknown]
  - Drug ineffective [Unknown]
  - Sputum discoloured [Unknown]
  - Nasopharyngitis [Unknown]
  - Infection [Unknown]
  - Rhinorrhoea [Unknown]
